FAERS Safety Report 17795837 (Version 2)
Quarter: 2020Q2

REPORT INFORMATION
  Report Type: Spontaneous
  Country: US (occurrence: US)
  Receive Date: 20200516
  Receipt Date: 20200520
  Transmission Date: 20200714
  Serious: No
  Sender: FDA-Public Use
  Company Number: NVSC2020US130877

PATIENT
  Sex: Female
  Weight: 122 kg

DRUGS (2)
  1. LENVIMA [Suspect]
     Active Substance: LENVATINIB
     Indication: RENAL CELL CARCINOMA
     Dosage: 18 MG, QD
     Route: 048
     Dates: start: 20200217, end: 20200424
  2. AFINITOR [Suspect]
     Active Substance: EVEROLIMUS
     Indication: PRODUCT USED FOR UNKNOWN INDICATION
     Dosage: UNK
     Route: 065
     Dates: end: 20200424

REACTIONS (7)
  - Feeding disorder [Unknown]
  - Decreased appetite [Unknown]
  - Vomiting [Unknown]
  - General physical health deterioration [Unknown]
  - Weight decreased [Unknown]
  - Stomatitis [Unknown]
  - Headache [Unknown]
